FAERS Safety Report 10062426 (Version 2)
Quarter: 2014Q2

REPORT INFORMATION
  Report Type: Spontaneous
  Country: US (occurrence: US)
  Receive Date: 20140407
  Receipt Date: 20140416
  Transmission Date: 20141212
  Serious: Yes (Other)
  Sender: FDA-Public Use
  Company Number: US-CUBIST PHARMACEUTICAL, INC.-2014CBST000491

PATIENT
  Sex: 0

DRUGS (14)
  1. CUBICIN [Suspect]
     Indication: ENTEROCOCCAL INFECTION
     Dosage: 10 MG/KG, Q24H
     Route: 042
     Dates: start: 20140325, end: 20140401
  2. CUBICIN [Suspect]
     Indication: ENTEROCOCCAL BACTERAEMIA
     Dosage: 12 MG/KG, Q24H
     Route: 042
     Dates: start: 20140402
  3. CUBICIN [Suspect]
     Indication: CENTRAL NERVOUS SYSTEM INFECTION
  4. CUBICIN [Suspect]
     Indication: OFF LABEL USE
  5. AMPICILLIN [Suspect]
     Indication: ENTEROCOCCAL INFECTION
     Dosage: 700 MG, Q4H
     Route: 042
     Dates: start: 20140325
  6. AMPICILLIN [Suspect]
     Indication: ENTEROCOCCAL INFECTION
  7. GENTAMYCIN                         /00047101/ [Suspect]
     Indication: ENTEROCOCCAL INFECTION
     Dosage: 15 MG, Q12H
     Route: 042
     Dates: start: 20140322
  8. GENTAMYCIN                         /00047101/ [Suspect]
     Indication: ENTEROCOCCAL INFECTION
  9. VANCOMYCIN [Suspect]
     Indication: ENTEROCOCCAL INFECTION
     Dosage: 240 MG, Q6H
     Route: 042
     Dates: start: 20140330
  10. VANCOMYCIN [Suspect]
     Indication: ENTEROCOCCAL INFECTION
  11. MEROPENEM [Suspect]
     Indication: ENTEROCOCCAL INFECTION
     Dosage: UNK UNK, UNK
     Route: 042
  12. MEROPENEM [Suspect]
     Indication: ENTEROCOCCAL INFECTION
  13. LINEZOLID [Suspect]
     Indication: ENTEROCOCCAL INFECTION
     Dosage: UNK, UNK, UNK
     Route: 065
  14. LINEZOLID [Suspect]
     Indication: ENTEROCOCCAL INFECTION

REACTIONS (4)
  - Enterococcal bacteraemia [Not Recovered/Not Resolved]
  - Cerebral ventricle dilatation [Not Recovered/Not Resolved]
  - Papilloedema [Not Recovered/Not Resolved]
  - Drug ineffective [Not Recovered/Not Resolved]
